FAERS Safety Report 5015104-2 (Version None)
Quarter: 2006Q2

REPORT INFORMATION
  Report Type: 
  Country: None (occurrence: None)
  Receive Date: 20060530
  Receipt Date: 20060502
  Transmission Date: 20061013
  Serious: Yes (Death, Disabling, Other)
  Sender: FDA-Public Use
  Company Number: MAG-2006-0000433

PATIENT
  Age: 62 Year
  Sex: Female

DRUGS (10)
  1. OXYCODONE HCL EXTENDED-RELEASE [Suspect]
     Indication: CANCER PAIN
     Dosage: SEE IMAGE
     Route: 048
     Dates: start: 20050603, end: 20050609
  2. OXYCODONE HCL EXTENDED-RELEASE [Suspect]
     Indication: CANCER PAIN
     Dosage: SEE IMAGE
     Route: 048
     Dates: start: 20050610, end: 20050627
  3. NOVAMIN (PROCHLORPERAZINE) [Suspect]
     Indication: NAUSEA
     Dosage: 15 MG, DAILY, ORAL
     Route: 048
     Dates: start: 20050603, end: 20050626
  4. DEPAKENE [Suspect]
     Indication: LUNG NEOPLASM MALIGNANT
     Dosage: 1.5 GRAM, DAILY, ORAL
     Route: 048
     Dates: start: 20050303, end: 20050626
  5. MAGNESIUM OXIDE (MAGNESIUM OXIDE) [Suspect]
     Indication: CONSTIPATION
     Dosage: 1.5 MG, DAILY, ORAL
     Route: 048
     Dates: start: 20050603, end: 20050626
  6. FAMOTIDINE [Suspect]
     Indication: LUNG NEOPLASM MALIGNANT
     Dosage: 20 MG, DAILY, INTRAVENOUS
     Route: 042
     Dates: start: 20050610, end: 20050615
  7. SAXIZON (HYDROCORTISONE SODIUM SUCCINATE) [Suspect]
     Indication: LUNG NEOPLASM MALIGNANT
     Dosage: 300 MG, SINGLE, INTRAVENOUS
     Route: 042
     Dates: start: 20050610, end: 20050610
  8. SELTOUCH (FELBINAC) [Suspect]
     Indication: CANCER PAIN
     Dosage: 400 MG, DAILY, ORAL
     Route: 048
     Dates: start: 20050524, end: 20050603
  9. MORPHINE [Concomitant]
  10. FUROSEMIDE [Concomitant]

REACTIONS (4)
  - DISEASE PROGRESSION [None]
  - HEPATIC FUNCTION ABNORMAL [None]
  - MULTI-ORGAN FAILURE [None]
  - NEOPLASM PROGRESSION [None]
